FAERS Safety Report 8791438 (Version 1)
Quarter: 2012Q4

REPORT INFORMATION
  Report Type: Spontaneous
  Country: US (occurrence: None)
  Receive Date: 20120912
  Receipt Date: 20120912
  Transmission Date: 20130627
  Serious: Yes (Hospitalization)
  Sender: FDA-Public Use
  Company Number: 2012-466

PATIENT
  Age: 42 Year
  Sex: Male

DRUGS (7)
  1. CLOZAPINE [Suspect]
     Route: 048
     Dates: end: 2002
  2. CHLORPROMAZINE (CHLORPROMAZINE HYDROCHLORIDE) [Concomitant]
  3. BENZTROPINE (BENZATROPINE MESILATE) [Concomitant]
  4. OMEPRAZOLE (OMEPRAZOLE) [Concomitant]
  5. LEVOTHYROXINE (LEVOTHYROXINE SODIUM) [Concomitant]
  6. LORAZEPAM (LORAZEPAM) [Concomitant]
  7. METFORMIN (METFORMIN HYDROCHLORIDE) [Concomitant]

REACTIONS (4)
  - Colonic pseudo-obstruction [None]
  - Large intestinal obstruction [None]
  - Faecaloma [None]
  - Constipation [None]
